FAERS Safety Report 5155850-3 (Version None)
Quarter: 2006Q4

REPORT INFORMATION
  Report Type: 
  Country: None (occurrence: None)
  Receive Date: 20061122
  Receipt Date: 20061110
  Transmission Date: 20070319
  Serious: Yes (Other)
  Sender: FDA-Public Use
  Company Number: PHFR2006GB03362

PATIENT
  Sex: Female

DRUGS (1)
  1. DESFERAL [Suspect]
     Indication: BLOOD IRON DECREASED
     Route: 065

REACTIONS (1)
  - RETINAL TOXICITY [None]
